FAERS Safety Report 4434403-6 (Version None)
Quarter: 2004Q3

REPORT INFORMATION
  Report Type: 
  Country: None (occurrence: None)
  Receive Date: 20040825
  Receipt Date: 20040803
  Transmission Date: 20050211
  Serious: Yes (Hospitalization)
  Sender: FDA-Public Use
  Company Number: A03200402589

PATIENT
  Age: 36 Year
  Sex: Male
  Weight: 149.687 kg

DRUGS (3)
  1. ELOXATIN [Suspect]
     Indication: COLON CANCER
     Dosage: 220 MG Q2W - INTRAVENOUS NOS
     Route: 042
     Dates: start: 20040608, end: 20040608
  2. FLUOROURACIL [Concomitant]
  3. LEUCOVORIN CALCIUM [Concomitant]

REACTIONS (4)
  - DYSPNOEA [None]
  - ERYTHEMA [None]
  - LARYNGOSPASM [None]
  - PRURITUS [None]
